FAERS Safety Report 6868334-9 (Version None)
Quarter: 2010Q3

REPORT INFORMATION
  Report Type: 
  Country: None (occurrence: None)
  Receive Date: 20100722
  Receipt Date: 20100714
  Transmission Date: 20110219
  Serious: Yes (Other)
  Sender: FDA-Public Use
  Company Number: US-AMGEN-QUU424319

PATIENT
  Sex: Female

DRUGS (7)
  1. NPLATE [Suspect]
     Indication: IDIOPATHIC THROMBOCYTOPENIC PURPURA
     Dates: start: 20090708, end: 20090805
  2. PROMACTA [Concomitant]
     Route: 048
     Dates: start: 20090121, end: 20090712
  3. VERAPAMIL [Concomitant]
  4. ENALAPRIL MALEATE [Concomitant]
  5. LIPITOR [Concomitant]
  6. GLIPIZIDE [Concomitant]
  7. HUMULIN R [Concomitant]

REACTIONS (1)
  - THERAPEUTIC RESPONSE DECREASED [None]
